FAERS Safety Report 23124949 (Version 1)
Quarter: 2023Q4

REPORT INFORMATION
  Report Type: Spontaneous
  Country: US (occurrence: None)
  Receive Date: 20231030
  Receipt Date: 20231030
  Transmission Date: 20240110
  Serious: Yes (unspecified)
  Sender: FDA-Public Use
  Company Number: None

PATIENT
  Age: 61 Year
  Sex: Female
  Weight: 84.37 kg

DRUGS (14)
  1. BENZONATATE [Suspect]
     Active Substance: BENZONATATE
     Indication: Cough
     Dosage: FREQUENCY : 3 TIMES A DAY;?
     Route: 048
     Dates: start: 20230925, end: 20230928
  2. LISINOPRIL [Concomitant]
     Active Substance: LISINOPRIL
  3. SIMVASTATIN [Concomitant]
     Active Substance: SIMVASTATIN
  4. AMLODIPINE BESYLATE [Concomitant]
  5. METFORMIN [Concomitant]
     Active Substance: METFORMIN HYDROCHLORIDE
  6. MOMETASONE FUROATE OINTMENT [Concomitant]
  7. METRONIDAZOLE [Concomitant]
     Active Substance: METRONIDAZOLE
  8. FLUOCINOMIDE CREAM [Concomitant]
  9. CLOBETASOL [Concomitant]
     Active Substance: CLOBETASOL
  10. CVS BRAND MULTIVITAMIN/MULTIMINERAL [Concomitant]
  11. CVS BRAND CALCIUM WITH VITAMIN D3 [Concomitant]
  12. CVS BRAND VITAMIN C [Concomitant]
  13. LORATADINE [Concomitant]
     Active Substance: LORATADINE
  14. CETIRIZINE [Concomitant]
     Active Substance: CETIRIZINE HYDROCHLORIDE

REACTIONS (5)
  - Urticaria [None]
  - Pruritus [None]
  - Skin burning sensation [None]
  - Scar [None]
  - Skin discolouration [None]

NARRATIVE: CASE EVENT DATE: 20230928
